FAERS Safety Report 18116417 (Version 1)
Quarter: 2020Q3

REPORT INFORMATION
  Report Type: Spontaneous
  Country: US (occurrence: US)
  Receive Date: 20200805
  Receipt Date: 20200805
  Transmission Date: 20201103
  Serious: No
  Sender: FDA-Public Use
  Company Number: US-PERRIGO-19US011196

PATIENT
  Age: 67 Year
  Sex: Female

DRUGS (1)
  1. IBUPROFEN. [Suspect]
     Active Substance: IBUPROFEN
     Indication: PRODUCT USED FOR UNKNOWN INDICATION
     Dosage: 800 MG, QD
     Route: 048
     Dates: start: 201908, end: 201908

REACTIONS (4)
  - Gastrointestinal tract irritation [Recovered/Resolved]
  - Dyspepsia [Recovered/Resolved]
  - Abdominal pain upper [Recovered/Resolved]
  - Incorrect dose administered [Recovered/Resolved]

NARRATIVE: CASE EVENT DATE: 201908
